FAERS Safety Report 21537118 (Version 3)
Quarter: 2022Q4

REPORT INFORMATION
  Report Type: Report from Study
  Country: DE (occurrence: DE)
  Receive Date: 20221101
  Receipt Date: 20221230
  Transmission Date: 20230112
  Serious: Yes (Hospitalization)
  Sender: FDA-Public Use
  Company Number: DE-ABBVIE-4176137

PATIENT
  Age: 80 Year
  Sex: Male

DRUGS (2)
  1. CARBIDOPA\LEVODOPA [Suspect]
     Active Substance: CARBIDOPA\LEVODOPA
     Indication: Parkinson^s disease
     Dosage: MD: 8.0ML; CRD: 2.6ML/H; ED: 3.0ML, LAST ADMIN DATE-2022
     Route: 050
     Dates: start: 20221017
  2. CARBIDOPA\LEVODOPA [Suspect]
     Active Substance: CARBIDOPA\LEVODOPA
     Dosage: FIRST ADMIN DATE-2022
     Route: 050

REACTIONS (1)
  - Dry eye [Not Recovered/Not Resolved]

NARRATIVE: CASE EVENT DATE: 20221001
